FAERS Safety Report 5621961-9 (Version None)
Quarter: 2008Q1

REPORT INFORMATION
  Report Type: 
  Country: None (occurrence: None)
  Receive Date: 20080211
  Receipt Date: 20080205
  Transmission Date: 20080703
  Serious: Yes (Death, Other)
  Sender: FDA-Public Use
  Company Number: B0502457A

PATIENT
  Age: 73 Year
  Sex: Female
  Weight: 46 kg

DRUGS (7)
  1. ZANTAC [Suspect]
     Indication: UTERINE CANCER
     Dosage: 50ML PER DAY
     Route: 042
     Dates: start: 20040415, end: 20050330
  2. DECADRON [Suspect]
     Indication: UTERINE CANCER
     Dosage: 8MG PER DAY
     Route: 042
     Dates: start: 20040405, end: 20050330
  3. RESTAMIN [Concomitant]
     Indication: UTERINE CANCER
     Dosage: 50MG PER DAY
     Route: 048
     Dates: start: 20040405, end: 20050330
  4. TAXOL [Concomitant]
     Indication: UTERINE CANCER
     Dosage: 90MG PER DAY
     Route: 042
     Dates: start: 20040404, end: 20050317
  5. SEROTONE [Concomitant]
     Indication: UTERINE CANCER
     Route: 042
     Dates: start: 20040405, end: 20050317
  6. PARAPLATIN [Concomitant]
     Indication: UTERINE CANCER
     Dosage: 150MG PER DAY
     Route: 042
     Dates: start: 20040405, end: 20050317
  7. ISOTONIC SODIUM CHLORIDE [Concomitant]
     Dosage: 100ML PER DAY
     Dates: start: 20050330

REACTIONS (5)
  - BLOOD PRESSURE DECREASED [None]
  - DEPRESSED LEVEL OF CONSCIOUSNESS [None]
  - DISEASE PROGRESSION [None]
  - HYPERSENSITIVITY [None]
  - LOSS OF CONSCIOUSNESS [None]
